FAERS Safety Report 16226907 (Version 1)
Quarter: 2019Q2

REPORT INFORMATION
  Report Type: Spontaneous
  Country: FR (occurrence: FR)
  Receive Date: 20190423
  Receipt Date: 20190423
  Transmission Date: 20190711
  Serious: Yes (Death, Hospitalization)
  Sender: FDA-Public Use
  Company Number: FR-TEVA-2019-FR-1040898

PATIENT
  Age: 89 Year
  Sex: Male

DRUGS (4)
  1. RISPERDAL [Suspect]
     Active Substance: RISPERIDONE
     Indication: AGGRESSION
     Dosage: .5 MILLIGRAM DAILY;
     Route: 048
     Dates: start: 201812
  2. GABAPENTINE [Suspect]
     Active Substance: GABAPENTIN
     Indication: ABNORMAL BEHAVIOUR
     Dosage: 300 MILLIGRAM DAILY;
     Route: 048
     Dates: start: 20181122
  3. SERESTA [Suspect]
     Active Substance: OXAZEPAM
     Indication: ABNORMAL BEHAVIOUR
     Dosage: 15 MILLIGRAM DAILY;
     Route: 048
     Dates: start: 201812
  4. THERALENE [Suspect]
     Active Substance: TRIMEPRAZINE
     Indication: ABNORMAL BEHAVIOUR
     Dosage: 15 MILLIGRAM DAILY;
     Route: 048

REACTIONS (2)
  - Altered state of consciousness [Fatal]
  - Somnolence [Fatal]

NARRATIVE: CASE EVENT DATE: 20190325
